FAERS Safety Report 5196979-3 (Version None)
Quarter: 2006Q4

REPORT INFORMATION
  Report Type: 
  Country: None (occurrence: None)
  Receive Date: 20061227
  Receipt Date: 20061215
  Transmission Date: 20070319
  Serious: Yes (Other)
  Sender: FDA-Public Use
  Company Number: 2006154044

PATIENT
  Age: 25 Year
  Sex: Female
  Weight: 69.8 kg

DRUGS (2)
  1. LYRICA [Suspect]
     Indication: EPILEPSY
     Dosage: 300 MG (300 MG, 1 IN 1 D), ORAL
     Route: 048
     Dates: start: 20060731
  2. TOPIRAMATE [Concomitant]

REACTIONS (6)
  - EYELID OEDEMA [None]
  - FATIGUE [None]
  - FEELING DRUNK [None]
  - NAUSEA [None]
  - SOMNOLENCE [None]
  - WEIGHT INCREASED [None]
